FAERS Safety Report 9157252 (Version 1)
Quarter: 2013Q1

REPORT INFORMATION
  Report Type: Spontaneous
  Country: CN (occurrence: CN)
  Receive Date: 20130312
  Receipt Date: 20130312
  Transmission Date: 20140127
  Serious: Yes (Hospitalization)
  Sender: FDA-Public Use
  Company Number: CN-JNJFOC-20130300869

PATIENT
  Sex: Male
  Weight: 10 kg

DRUGS (4)
  1. IBUPROFEN [Suspect]
     Indication: PYREXIA
     Route: 048
     Dates: start: 20110119
  2. IBUPROFEN [Suspect]
     Indication: PYREXIA
     Dosage: 100ML BOTTLE: 2 G??0.3ML 4 TIMES A DAY
     Route: 048
     Dates: start: 20110110, end: 20110115
  3. CINNAMOMUM CAMPHORA LEAFY TWIG [Suspect]
     Indication: PYREXIA
     Route: 048
     Dates: start: 20110110
  4. BAMYL [Concomitant]
     Indication: KAWASAKI^S DISEASE
     Route: 048

REACTIONS (3)
  - Erythema multiforme [Recovering/Resolving]
  - Bronchitis [None]
  - Infectious mononucleosis [None]
